FAERS Safety Report 5574995-7 (Version None)
Quarter: 2007Q4

REPORT INFORMATION
  Report Type: 
  Country: None (occurrence: None)
  Receive Date: 20071227
  Receipt Date: 20071220
  Transmission Date: 20080405
  Serious: Yes (Hospitalization)
  Sender: FDA-Public Use
  Company Number: B0500918A

PATIENT
  Age: 71 Year
  Sex: Female

DRUGS (2)
  1. AMOXICILLIN + CLAVULANATE POTASSIUM [Suspect]
     Indication: PROPHYLAXIS
     Dosage: 2TAB PER DAY
     Route: 048
     Dates: start: 20071202, end: 20071212
  2. UNIPRIL [Concomitant]
     Indication: HYPERTENSION

REACTIONS (4)
  - DIARRHOEA [None]
  - MELAENA [None]
  - RECTAL HAEMORRHAGE [None]
  - VOMITING [None]
